FAERS Safety Report 10136480 (Version 1)
Quarter: 2014Q2

REPORT INFORMATION
  Report Type: Spontaneous
  Country: US (occurrence: None)
  Receive Date: 20140425
  Receipt Date: 20140425
  Transmission Date: 20141212
  Serious: No
  Sender: FDA-Public Use
  Company Number: None

PATIENT
  Sex: 0

DRUGS (1)
  1. HURRICAINE TOPICAL ANESTHETIC [Suspect]

REACTIONS (2)
  - Device breakage [None]
  - Removal of foreign body from throat [None]
